FAERS Safety Report 7958840-8 (Version None)
Quarter: 2011Q4

REPORT INFORMATION
  Report Type: 
  Country: None (occurrence: None)
  Receive Date: 20111206
  Receipt Date: 20111129
  Transmission Date: 20120403
  Serious: Yes (Hospitalization)
  Sender: FDA-Public Use
  Company Number: DE-TEVA-311268GER

PATIENT
  Age: 16 Year
  Sex: Female

DRUGS (10)
  1. CLOZAPINE [Suspect]
     Indication: SCHIZOPHRENIA
     Dosage: 25 MILLIGRAM;
     Route: 048
     Dates: start: 20110730, end: 20110801
  2. CLOZAPINE [Suspect]
     Dosage: 50 MILLIGRAM;
     Route: 048
     Dates: start: 20110802, end: 20110804
  3. CLOZAPINE [Suspect]
     Dosage: 75 MILLIGRAM;
     Route: 048
  4. HALDOL [Suspect]
     Indication: SCHIZOPHRENIA
     Dosage: 10 MILLIGRAM;
     Route: 048
     Dates: start: 20110720, end: 20110722
  5. HALDOL [Suspect]
     Dosage: 10 MILLIGRAM;
     Route: 048
     Dates: start: 20110802, end: 20110807
  6. CLOZAPINE [Suspect]
     Dosage: 100 MILLIGRAM;
     Route: 048
     Dates: start: 20110808, end: 20110812
  7. HALDOL [Suspect]
     Dosage: 15 MILLIGRAM;
     Route: 048
     Dates: start: 20110723, end: 20110729
  8. HALDOL [Suspect]
     Dosage: 12.5 MILLIGRAM;
     Route: 048
     Dates: start: 20110730, end: 20110801
  9. CLOZAPINE [Suspect]
     Dosage: 125 MILLIGRAM;
     Route: 048
     Dates: start: 20110813
  10. HALDOL [Suspect]
     Dosage: 7.5 MILLIGRAM;
     Route: 048
     Dates: start: 20110808

REACTIONS (8)
  - MATERNAL EXPOSURE DURING PREGNANCY [None]
  - HAEMORRHAGE [None]
  - UNINTENDED PREGNANCY [None]
  - ABORTION [None]
  - ABORTION SPONTANEOUS [None]
  - AKATHISIA [None]
  - THINKING ABNORMAL [None]
  - PSYCHOTIC DISORDER [None]
